FAERS Safety Report 6983602-8 (Version None)
Quarter: 2010Q3

REPORT INFORMATION
  Report Type: 
  Country: None (occurrence: None)
  Receive Date: 20100914
  Receipt Date: 20080822
  Transmission Date: 20110219
  Serious: No
  Sender: FDA-Public Use
  Company Number: US-WYE-H05708108

PATIENT
  Age: 89 Year
  Sex: Female
  Weight: 68.1 kg

DRUGS (4)
  1. ADVIL LIQUI-GELS [Suspect]
     Indication: ARTHRITIS
     Dosage: 2 LIQUI-GELS TWO TO THREE TIMES DAILY
     Route: 048
     Dates: start: 20080501
  2. ADVIL LIQUI-GELS [Suspect]
     Indication: PAIN
  3. ENALAPRIL [Concomitant]
  4. CHLORDIAZEPOXIDE [Concomitant]

REACTIONS (1)
  - POLLAKIURIA [None]
